FAERS Safety Report 19097486 (Version 1)
Quarter: 2021Q2

REPORT INFORMATION
  Report Type: Spontaneous
  Country: AU (occurrence: AU)
  Receive Date: 20210406
  Receipt Date: 20210406
  Transmission Date: 20210717
  Serious: Yes (Other)
  Sender: FDA-Public Use
  Company Number: AU-MYLANLABS-2021M1018639

PATIENT
  Sex: Female

DRUGS (3)
  1. ANPEC 40 [Suspect]
     Active Substance: VERAPAMIL HYDROCHLORIDE
     Indication: ATRIAL FIBRILLATION
     Dosage: 40 MILLIGRAM, BID
  2. ISOPTIN SR [Suspect]
     Active Substance: VERAPAMIL HYDROCHLORIDE
     Indication: PRODUCT USED FOR UNKNOWN INDICATION
     Dosage: 180 MILLIGRAM,1/2 TABLET DAILY
  3. ANPEC 40 [Suspect]
     Active Substance: VERAPAMIL HYDROCHLORIDE
     Dosage: 40 MILLIGRAM, TID

REACTIONS (3)
  - Headache [Unknown]
  - Blood pressure increased [Unknown]
  - Wrong technique in product usage process [Unknown]
